FAERS Safety Report 24649828 (Version 3)
Quarter: 2024Q4

REPORT INFORMATION
  Report Type: Report from Study
  Country: KR (occurrence: KR)
  Receive Date: 20241121
  Receipt Date: 20241230
  Transmission Date: 20250115
  Serious: Yes (Life-Threatening, Hospitalization, Other)
  Sender: JAZZ
  Company Number: KR-BR-2024-0305

PATIENT
  Age: 75 Year
  Sex: Male
  Weight: 66.4 kg

DRUGS (9)
  1. LURBINECTEDIN [Suspect]
     Active Substance: LURBINECTEDIN
     Indication: Small cell lung cancer
     Dosage: 3.2 MILLIGRAM/SQ. METER, Q3W
     Route: 042
     Dates: start: 20241022
  2. ERDOKLE [Concomitant]
     Indication: Chronic obstructive pulmonary disease
     Dosage: 1 DOSAGE FORM, Q8H
     Route: 048
     Dates: start: 20231226
  3. CODAEWON FORTE [Concomitant]
     Indication: Chronic obstructive pulmonary disease
     Dosage: 20 MILLILITER, Q8H
     Route: 048
     Dates: start: 20231215
  4. SCD MAGNESIUM OXIDE [Concomitant]
     Indication: Prophylaxis
     Dosage: 1 DOSAGE FORM
     Route: 048
     Dates: start: 20241004
  5. LAFUTIDINE [Concomitant]
     Active Substance: LAFUTIDINE
     Indication: Prophylaxis
     Dosage: 1 DOSAGE FORM, QD
     Route: 048
     Dates: start: 20240409
  6. MACPERAN [METOCLOPRAMIDE] [Concomitant]
     Indication: Prophylaxis of nausea and vomiting
     Dosage: 1 DOSAGE FORM, Q8H
     Route: 048
     Dates: start: 20240920
  7. YUHAN DEXAMETHASONE DISODIUM PHOSPHATE [Concomitant]
     Indication: Premedication
     Dosage: 1 MILLILITER, QD
     Route: 042
     Dates: start: 20241022, end: 20241022
  8. ONDANT [Concomitant]
     Indication: Premedication
     Dosage: 8 MILLIGRAM, QD
     Route: 042
     Dates: start: 20241022, end: 20241022
  9. ANORO ELLIPTA [Concomitant]
     Active Substance: UMECLIDINIUM BROMIDE\VILANTEROL TRIFENATATE
     Indication: Chronic obstructive pulmonary disease
     Dosage: 1 DOSAGE FORM, QD
     Dates: start: 20240227

REACTIONS (1)
  - Neutropenic sepsis [Recovered/Resolved]

NARRATIVE: CASE EVENT DATE: 20241031
